FAERS Safety Report 23866330 (Version 1)
Quarter: 2024Q2

REPORT INFORMATION
  Report Type: Spontaneous
  Country: JP (occurrence: JP)
  Receive Date: 20240517
  Receipt Date: 20240517
  Transmission Date: 20240716
  Serious: Yes (Death, Other)
  Sender: FDA-Public Use
  Company Number: JP-TAKEDA-2024TJP006758

PATIENT
  Age: 72 Year
  Sex: Male
  Weight: 53 kg

DRUGS (1)
  1. CABOMETYX [Suspect]
     Active Substance: CABOZANTINIB S-MALATE
     Indication: Hepatocellular carcinoma
     Dosage: 40 MILLIGRAM
     Route: 065
     Dates: start: 20231123, end: 20240121

REACTIONS (1)
  - Death [Fatal]

NARRATIVE: CASE EVENT DATE: 20240315
